FAERS Safety Report 14670782 (Version 1)
Quarter: 2018Q1

REPORT INFORMATION
  Report Type: Spontaneous
  Country: US (occurrence: US)
  Receive Date: 20180322
  Receipt Date: 20180322
  Transmission Date: 20180509
  Serious: No
  Sender: FDA-Public Use
  Company Number: US-ACTELION-A-NJ2016-130789

PATIENT
  Age: 72 Year
  Sex: Male
  Weight: 71.2 kg

DRUGS (3)
  1. OPSUMIT [Suspect]
     Active Substance: MACITENTAN
     Indication: PULMONARY HYPERTENSION
     Dosage: 10 MG, QD
     Route: 048
  2. REMODULIN [Concomitant]
     Active Substance: TREPROSTINIL
  3. SILDENAFIL. [Concomitant]
     Active Substance: SILDENAFIL

REACTIONS (6)
  - Head discomfort [Unknown]
  - Infusion site erythema [Unknown]
  - Infusion site swelling [Unknown]
  - Weight decreased [Unknown]
  - Infusion site pain [Unknown]
  - Chest pain [Recovering/Resolving]

NARRATIVE: CASE EVENT DATE: 20160121
